FAERS Safety Report 5911850-4 (Version None)
Quarter: 2008Q4

REPORT INFORMATION
  Report Type: 
  Country: None (occurrence: None)
  Receive Date: 20081006
  Receipt Date: 20080924
  Transmission Date: 20090506
  Serious: Yes (Disabling, Other)
  Sender: FDA-Public Use
  Company Number: ADE2008-0322

PATIENT
  Age: 60 Year
  Sex: Male
  Weight: 77 kg

DRUGS (2)
  1. SIMVASTATIN [Suspect]
     Dosage: 40MG - PO
     Route: 048
     Dates: start: 20070319, end: 20080421
  2. ALFUZOSIN 10MG [Concomitant]

REACTIONS (1)
  - PROSTATISM [None]
